FAERS Safety Report 8509021 (Version 2)
Quarter: 2014Q1

REPORT INFORMATION
  Report Type: Spontaneous
  Country: US (occurrence: US)
  Receive Date: 20120412
  Receipt Date: 20140321
  Transmission Date: 20141002
  Serious: No
  Sender: FDA-Public Use
  Company Number: US-ASTRAZENECA-2012SE04833

PATIENT
  Age: 56 Year
  Sex: Female

DRUGS (1)
  1. NEXIUM [Suspect]
     Indication: GASTROOESOPHAGEAL REFLUX DISEASE
     Route: 048
     Dates: start: 2002

REACTIONS (6)
  - Gastrooesophageal reflux disease [Unknown]
  - Aphagia [Unknown]
  - Dyspepsia [Unknown]
  - Eructation [Unknown]
  - Vomiting [Unknown]
  - Drug dose omission [Unknown]
